FAERS Safety Report 19310553 (Version 2)
Quarter: 2021Q2

REPORT INFORMATION
  Report Type: Report from Study
  Country: CN (occurrence: CN)
  Receive Date: 20210526
  Receipt Date: 20210604
  Transmission Date: 20210717
  Serious: Yes (Hospitalization)
  Sender: FDA-Public Use
  Company Number: CN-PFIZER INC-2021566324

PATIENT
  Age: 45 Year
  Sex: Male
  Weight: 47 kg

DRUGS (5)
  1. CARBOPLATIN. [Suspect]
     Active Substance: CARBOPLATIN
     Indication: SQUAMOUS CELL CARCINOMA OF LUNG
     Dosage: 750 MG, EVERY 3 WEEKS
     Route: 041
     Dates: start: 20210416, end: 20210416
  2. ANZATAX (PACLITAXEL) [Suspect]
     Active Substance: PACLITAXEL
     Indication: SQUAMOUS CELL CARCINOMA OF LUNG
     Dosage: 261 MG, EVERY 3 WEEKS
     Route: 041
     Dates: start: 20210416, end: 20210416
  3. BLINDED THERAPY [Suspect]
     Active Substance: INVESTIGATIONAL PRODUCT
     Indication: SQUAMOUS CELL CARCINOMA OF LUNG
     Dosage: UNK, EVERY 3 WEEKS
     Route: 041
     Dates: start: 20210415, end: 20210415
  4. BLINDED THERAPY [Suspect]
     Active Substance: INVESTIGATIONAL PRODUCT
     Dosage: UNK, EVERY 3 WEEKS
     Route: 041
     Dates: start: 20210508, end: 20210508
  5. PROMETHAZINE HYDROCHLORIDE. [Concomitant]
     Active Substance: PROMETHAZINE HYDROCHLORIDE
     Dosage: 25, SINGLE
     Route: 030
     Dates: start: 20210508, end: 20210508

REACTIONS (1)
  - Lung abscess [Recovering/Resolving]

NARRATIVE: CASE EVENT DATE: 20210508
